FAERS Safety Report 11265685 (Version 1)
Quarter: 2015Q3

REPORT INFORMATION
  Report Type: Spontaneous
  Country: US (occurrence: US)
  Receive Date: 20150713
  Receipt Date: 20150713
  Transmission Date: 20151125
  Serious: Yes (Death, Hospitalization, Other)
  Sender: FDA-Public Use
  Company Number: US-PFIZER INC-2015227418

PATIENT
  Age: 77 Year
  Sex: Female

DRUGS (1)
  1. REVATIO [Suspect]
     Active Substance: SILDENAFIL CITRATE
     Dosage: 20 MG, UNK

REACTIONS (9)
  - Dehydration [Unknown]
  - General physical health deterioration [Unknown]
  - Renal failure [Fatal]
  - Depressed mood [Unknown]
  - Decreased interest [Unknown]
  - Urinary tract obstruction [Unknown]
  - Malaise [Unknown]
  - Procedural pain [Unknown]
  - Decreased appetite [Unknown]
